FAERS Safety Report 6274692-9 (Version None)
Quarter: 2009Q3

REPORT INFORMATION
  Report Type: 
  Country: None (occurrence: None)
  Receive Date: 20090721
  Receipt Date: 20071119
  Transmission Date: 20100115
  Serious: Yes (Hospitalization, Other)
  Sender: FDA-Public Use
  Company Number: US-ASTRAZENECA-2006UW26377

PATIENT
  Age: 28 Year
  Sex: Male
  Weight: 60.8 kg

DRUGS (12)
  1. SEROQUEL [Suspect]
     Indication: SCHIZOPHRENIA
     Dosage: 25 MG TO 50 MG
     Route: 048
     Dates: start: 20050518
  2. SEROQUEL [Suspect]
     Indication: BIPOLAR DISORDER
     Dosage: 25 MG TO 50 MG
     Route: 048
     Dates: start: 20050518
  3. SEROQUEL [Suspect]
     Indication: DEPRESSION
     Dosage: 25 MG TO 50 MG
     Route: 048
     Dates: start: 20050518
  4. SEROQUEL [Suspect]
     Dosage: 50 MG TO 100 MG
     Route: 048
     Dates: start: 20051119, end: 20071206
  5. SEROQUEL [Suspect]
     Dosage: 50 MG TO 100 MG
     Route: 048
     Dates: start: 20051119, end: 20071206
  6. SEROQUEL [Suspect]
     Dosage: 50 MG TO 100 MG
     Route: 048
     Dates: start: 20051119, end: 20071206
  7. ZANTAC [Concomitant]
     Route: 048
     Dates: start: 20040629
  8. LISINOPRIL [Concomitant]
     Route: 048
     Dates: start: 20050705
  9. ZOLOFT [Concomitant]
     Route: 048
     Dates: start: 20050705
  10. ALLEGRA [Concomitant]
     Route: 048
     Dates: start: 20050705
  11. DEPAKOTE [Concomitant]
     Route: 048
     Dates: start: 20051119
  12. TOPAMAX [Concomitant]
     Route: 048
     Dates: start: 20051119

REACTIONS (7)
  - DIABETES MELLITUS [None]
  - DIABETIC KETOACIDOSIS [None]
  - ILL-DEFINED DISORDER [None]
  - MULTIPLE INJURIES [None]
  - PANCREATITIS [None]
  - PROSTATIC ABSCESS [None]
  - TYPE 2 DIABETES MELLITUS [None]
